FAERS Safety Report 5488930-3 (Version None)
Quarter: 2007Q4

REPORT INFORMATION
  Report Type: 
  Country: None (occurrence: None)
  Receive Date: 20071016
  Receipt Date: 20071010
  Transmission Date: 20080405
  Serious: Yes (Death, Hospitalization)
  Sender: FDA-Public Use
  Company Number: 2007SP019637

PATIENT
  Age: 52 Year
  Sex: Male
  Weight: 75 kg

DRUGS (2)
  1. PEGETRON (PEGINTERFERON ALFA-2B W/RIBAVIRIN) (PEGYLATED INTERFERON ALF [Suspect]
     Indication: HEPATITIS C
     Dosage: 120 MCG; SC, PO
     Dates: start: 20070809, end: 20070918
  2. PEGETRON (PEGINTERFERON ALFA-2B W/RIBAVIRIN) (PEGYLATED INTERFERON ALF [Suspect]
     Indication: HEPATITIS C
     Dosage: 120 MCG; SC, PO
     Dates: start: 20070809, end: 20070918

REACTIONS (8)
  - BACK PAIN [None]
  - CONFUSIONAL STATE [None]
  - INCOHERENT [None]
  - PANCREATITIS [None]
  - PNEUMONIA [None]
  - SKIN DISCOLOURATION [None]
  - STAPHYLOCOCCAL SKIN INFECTION [None]
  - TREMOR [None]
